FAERS Safety Report 5699130-6 (Version None)
Quarter: 2008Q2

REPORT INFORMATION
  Report Type: 
  Country: None (occurrence: None)
  Receive Date: 20080407
  Receipt Date: 20080407
  Transmission Date: 20081010
  Serious: No
  Sender: FDA-Public Use
  Company Number: None

PATIENT
  Age: 33 Year
  Sex: Female
  Weight: 104.3273 kg

DRUGS (1)
  1. MIRENA [Suspect]
     Indication: CONTRACEPTION
     Dosage: 1 EVERY 5 YEARS  INTRA-UTERI
     Route: 015
     Dates: start: 20080305, end: 20080322

REACTIONS (7)
  - ARTHRALGIA [None]
  - BACK PAIN [None]
  - DEPRESSION [None]
  - FEELING ABNORMAL [None]
  - MIGRAINE [None]
  - MUSCLE SPASMS [None]
  - WEIGHT INCREASED [None]
